FAERS Safety Report 16184579 (Version 1)
Quarter: 2019Q2

REPORT INFORMATION
  Report Type: Spontaneous
  Country: US (occurrence: US)
  Receive Date: 20190308
  Receipt Date: 20190308
  Transmission Date: 20190711
  Serious: No
  Sender: FDA-Public Use
  Company Number: None

PATIENT

DRUGS (1)
  1. CAPECITABINE 500MG ROXANE [Suspect]
     Active Substance: CAPECITABINE
     Route: 048
     Dates: start: 201902

REACTIONS (6)
  - Atrial fibrillation [None]
  - Hypersensitivity [None]
  - Weight decreased [None]
  - Dehydration [None]
  - Shock [None]
  - Vomiting [None]
